FAERS Safety Report 16518063 (Version 2)
Quarter: 2019Q3

REPORT INFORMATION
  Report Type: Spontaneous
  Country: GR (occurrence: GR)
  Receive Date: 20190702
  Receipt Date: 20190705
  Transmission Date: 20191004
  Serious: Yes (Other)
  Sender: FDA-Public Use
  Company Number: GR-PFIZER INC-2019276742

PATIENT
  Age: 46 Year
  Sex: Female

DRUGS (6)
  1. DOXYCYCLINE MONOHYDRATE [Suspect]
     Active Substance: DOXYCYCLINE
     Indication: PELVIC INFLAMMATORY DISEASE
     Dosage: 100 MG, 2X/DAY
     Route: 048
  2. CEFUROXIME. [Suspect]
     Active Substance: CEFUROXIME
     Indication: PELVIC ABSCESS
  3. METRONIDAZOLE. [Suspect]
     Active Substance: METRONIDAZOLE
     Indication: PELVIC INFLAMMATORY DISEASE
     Dosage: 500 MG, 3X/DAY
     Route: 042
  4. METRONIDAZOLE. [Suspect]
     Active Substance: METRONIDAZOLE
     Indication: PELVIC ABSCESS
  5. DOXYCYCLINE MONOHYDRATE [Suspect]
     Active Substance: DOXYCYCLINE
     Indication: PELVIC ABSCESS
  6. CEFUROXIME. [Suspect]
     Active Substance: CEFUROXIME
     Indication: PELVIC INFLAMMATORY DISEASE
     Dosage: 750 MG, 3X/DAY

REACTIONS (2)
  - Condition aggravated [Unknown]
  - Drug ineffective [Unknown]
